FAERS Safety Report 24419839 (Version 2)
Quarter: 2024Q4

REPORT INFORMATION
  Report Type: Spontaneous
  Country: CN (occurrence: CN)
  Receive Date: 20241010
  Receipt Date: 20241018
  Transmission Date: 20250114
  Serious: No
  Sender: ROCHE
  Company Number: CN-BoehringerIngelheim-2024-BI-013156

PATIENT
  Age: 72 Year
  Sex: Female
  Weight: 48.0 kg

DRUGS (4)
  1. ALTEPLASE [Suspect]
     Active Substance: ALTEPLASE
     Indication: Thrombosis
     Route: 042
     Dates: start: 20240131, end: 20240131
  2. ALTEPLASE [Suspect]
     Active Substance: ALTEPLASE
     Route: 042
     Dates: start: 20240131, end: 20240131
  3. STERILE WATER [Concomitant]
     Active Substance: WATER
     Indication: Drug therapy
     Route: 042
     Dates: start: 20240131, end: 20240131
  4. STERILE WATER [Concomitant]
     Active Substance: WATER
     Route: 042
     Dates: start: 20240131, end: 20240131

REACTIONS (1)
  - Epistaxis [Recovered/Resolved]

NARRATIVE: CASE EVENT DATE: 20240131
